FAERS Safety Report 7699473-0 (Version None)
Quarter: 2011Q3

REPORT INFORMATION
  Report Type: 
  Country: None (occurrence: None)
  Receive Date: 20110820
  Receipt Date: 20101123
  Transmission Date: 20111222
  Serious: No
  Sender: FDA-Public Use
  Company Number: US-ALLERGAN-1015196US

PATIENT
  Age: 71 Year
  Sex: Female

DRUGS (1)
  1. SANCTURA XR [Suspect]
     Indication: URINARY INCONTINENCE
     Dosage: 60 MG, QD
     Route: 048
     Dates: start: 20101117

REACTIONS (3)
  - ANXIETY [None]
  - INSOMNIA [None]
  - CONSTIPATION [None]
